FAERS Safety Report 10638271 (Version 2)
Quarter: 2014Q4

REPORT INFORMATION
  Report Type: Spontaneous
  Country: GB (occurrence: None)
  Receive Date: 20141204
  Receipt Date: 20141215
  Transmission Date: 20150529
  Serious: Yes (Death)
  Sender: FDA-Public Use
  Company Number: AMAG201400450

PATIENT

DRUGS (2)
  1. BUSCOPAN (HYOSCINE BUTYLSCOPOLAMINE) [Concomitant]
  2. RIENSO (FERUMOXYTOL) INJECTION [Suspect]
     Active Substance: FERUMOXYTOL
     Indication: IMAGING PROCEDURE
     Dosage: SINGLE
     Route: 042
     Dates: start: 20121113, end: 20121113

REACTIONS (3)
  - Prostate cancer metastatic [None]
  - Malignant neoplasm progression [None]
  - Lung cancer metastatic [None]

NARRATIVE: CASE EVENT DATE: 20141116
